FAERS Safety Report 14618978 (Version 1)
Quarter: 2018Q1

REPORT INFORMATION
  Report Type: Spontaneous
  Country: DE (occurrence: DE)
  Receive Date: 20180309
  Receipt Date: 20180309
  Transmission Date: 20180509
  Serious: Yes (Hospitalization, Other)
  Sender: FDA-Public Use
  Company Number: DE-IPSEN BIOPHARMACEUTICALS, INC.-2018-03731

PATIENT
  Age: 60 Year
  Sex: Female
  Weight: 75 kg

DRUGS (15)
  1. CITALOPRAM [Concomitant]
     Active Substance: CITALOPRAM HYDROBROMIDE
  2. AMLODIPIN [Concomitant]
     Active Substance: AMLODIPINE BESYLATE
  3. JANUVIA [Concomitant]
     Active Substance: SITAGLIPTIN PHOSPHATE
  4. LYRICA [Concomitant]
     Active Substance: PREGABALIN
  5. PEGYLATED LIPOSOMAL IRINOTECAN [Suspect]
     Active Substance: IRINOTECAN HYDROCHLORIDE
     Indication: COLORECTAL CANCER METASTATIC
     Dosage: 80 MG/GM
     Route: 042
     Dates: start: 20170322, end: 2017
  6. 5-FU [Suspect]
     Active Substance: FLUOROURACIL
     Dosage: 600 MG/GM
     Route: 042
     Dates: start: 20170627
  7. ZALTRAP [Suspect]
     Active Substance: ZIV-AFLIBERCEPT
     Indication: COLORECTAL CANCER METASTATIC
     Route: 042
     Dates: start: 20170322, end: 20170322
  8. LEUCOVORIN. [Suspect]
     Active Substance: LEUCOVORIN
     Indication: PRODUCT USED FOR UNKNOWN INDICATION
  9. LANTUS [Concomitant]
     Active Substance: INSULIN GLARGINE
  10. THYROXIN [Concomitant]
     Active Substance: LEVOTHYROXINE
  11. METOPROLOL. [Concomitant]
     Active Substance: METOPROLOL
  12. PANTOZOL [Concomitant]
     Active Substance: PANTOPRAZOLE SODIUM
  13. XARELTO [Concomitant]
     Active Substance: RIVAROXABAN
  14. PEGYLATED LIPOSOMAL IRINOTECAN [Suspect]
     Active Substance: IRINOTECAN HYDROCHLORIDE
     Indication: OFF LABEL USE
     Dosage: 140 MG/GM
     Route: 042
     Dates: start: 20170627
  15. 5-FU [Suspect]
     Active Substance: FLUOROURACIL
     Indication: COLORECTAL CANCER METASTATIC
     Dosage: 600 MG/GM
     Route: 042
     Dates: start: 20170322, end: 20170322

REACTIONS (4)
  - Decreased appetite [Recovered/Resolved]
  - Incontinence [Not Recovered/Not Resolved]
  - Urosepsis [Recovered/Resolved]
  - Off label use [Unknown]

NARRATIVE: CASE EVENT DATE: 20170707
